FAERS Safety Report 9387900 (Version 1)
Quarter: 2013Q3

REPORT INFORMATION
  Report Type: Report from Study
  Country: CA (occurrence: CA)
  Receive Date: 20130708
  Receipt Date: 20130708
  Transmission Date: 20140515
  Serious: Yes (Hospitalization)
  Sender: FDA-Public Use
  Company Number: CA-ELI_LILLY_AND_COMPANY-CA201306008509

PATIENT
  Age: 74 Year
  Sex: Female

DRUGS (13)
  1. TERIPARATIDE [Suspect]
     Indication: OSTEOPOROSIS
     Dosage: 20 UG, QD
     Route: 058
     Dates: start: 20130417
  2. CRESTOR [Concomitant]
  3. CYMBALTA [Concomitant]
  4. GLUCOSAMINE CHONDROITIN [Concomitant]
  5. MULTIVITAMIN [Concomitant]
  6. MAGNESIUM [Concomitant]
  7. RAMIPRIL [Concomitant]
  8. CLONAZEPAM [Concomitant]
  9. OMEPRAZOLE [Concomitant]
  10. CALCIUM [Concomitant]
  11. VITAMIN D [Concomitant]
  12. TYLENOL                                 /SCH/ [Concomitant]
  13. ASA [Concomitant]

REACTIONS (1)
  - Back pain [Not Recovered/Not Resolved]
